FAERS Safety Report 15210210 (Version 1)
Quarter: 2018Q3

REPORT INFORMATION
  Report Type: Spontaneous
  Country: JP (occurrence: JP)
  Receive Date: 20180727
  Receipt Date: 20180727
  Transmission Date: 20181010
  Serious: Yes (Death, Other)
  Sender: FDA-Public Use
  Company Number: JP-ALLERGAN-1837611US

PATIENT
  Age: 61 Year
  Sex: Male

DRUGS (1)
  1. MILNACIPRAN ? BP [Suspect]
     Active Substance: MILNACIPRAN
     Indication: PRODUCT USED FOR UNKNOWN INDICATION
     Dosage: 25 MG, UNK
     Route: 048
     Dates: start: 200510, end: 201105

REACTIONS (2)
  - Neuroleptic malignant syndrome [Fatal]
  - Pneumonia [Fatal]
